FAERS Safety Report 4306249-0 (Version None)
Quarter: 2004Q1

REPORT INFORMATION
  Report Type: 
  Country: None (occurrence: None)
  Receive Date: 20040225
  Receipt Date: 20040210
  Transmission Date: 20041129
  Serious: Yes (Hospitalization)
  Sender: FDA-Public Use
  Company Number: USA040258982

PATIENT
  Sex: Female

DRUGS (2)
  1. HUMALOG MIX 75/25 [Suspect]
  2. GLUCOPHAGE [Concomitant]

REACTIONS (2)
  - MEDICATION ERROR [None]
  - SHOCK HYPOGLYCAEMIC [None]
